FAERS Safety Report 9435831 (Version 1)
Quarter: 2013Q3

REPORT INFORMATION
  Report Type: Spontaneous
  Country: US (occurrence: None)
  Receive Date: 20130801
  Receipt Date: 20130801
  Transmission Date: 20140515
  Serious: No
  Sender: FDA-Public Use
  Company Number: None

PATIENT
  Age: 79 None
  Sex: Female
  Weight: 48.99 kg

DRUGS (8)
  1. RECLAST [Suspect]
     Indication: OSTEOPOROSIS
     Dosage: ONCE A YEAR
     Dates: start: 20100122, end: 20130710
  2. AMLODIPINE [Concomitant]
  3. COZAAR [Concomitant]
  4. SYNTHROID [Concomitant]
  5. ZALATAN EYE DROPS [Concomitant]
  6. TRAMADOL [Concomitant]
  7. MUTI VIT [Concomitant]
  8. CALCIUM WITH VITD, IRON-MEGA RED FISH OIL [Concomitant]

REACTIONS (1)
  - Abdominal distension [None]
